FAERS Safety Report 5495468-6 (Version None)
Quarter: 2007Q4

REPORT INFORMATION
  Report Type: 
  Country: None (occurrence: None)
  Receive Date: 20071023
  Receipt Date: 20071009
  Transmission Date: 20080405
  Serious: Yes (Death)
  Sender: FDA-Public Use
  Company Number: US-JNJFOC-20070900741

PATIENT
  Age: 69 Year
  Sex: Male
  Weight: 69 kg

DRUGS (13)
  1. DACOGEN [Suspect]
     Indication: MYELODYSPLASTIC SYNDROME
     Dosage: CYCLE 1, CYCLE 2, CYCLE 3, CYCLE 4, CYCLE 5
     Dates: start: 20070407
  2. DACOGEN [Suspect]
     Indication: MYELODYSPLASTIC SYNDROME
     Dosage: CYCLE 1, CYCLE 2, CYCLE 3, CYCLE 4, CYCLE 5
     Dates: start: 20070514
  3. DACOGEN [Suspect]
     Indication: MYELODYSPLASTIC SYNDROME
     Dosage: CYCLE 1, CYCLE 2, CYCLE 3, CYCLE 4, CYCLE 5
     Dates: start: 20070611
  4. DACOGEN [Suspect]
     Indication: MYELODYSPLASTIC SYNDROME
     Dosage: CYCLE 1, CYCLE 2, CYCLE 3, CYCLE 4, CYCLE 5
     Dates: start: 20070716
  5. DACOGEN [Suspect]
     Indication: MYELODYSPLASTIC SYNDROME
     Dosage: CYCLE 1, CYCLE 2, CYCLE 3, CYCLE 4, CYCLE 5
     Dates: start: 20070813
  6. ALLEGRA (FEXOFENADINE HYDROCHLORIDE) [Concomitant]
  7. PULMICORT [Concomitant]
  8. ARTHROTEC [Concomitant]
  9. CRESTOR [Concomitant]
  10. GLUCOSAMINE (GLUCOSAMIDE) [Concomitant]
  11. PREDNISONE TAB [Concomitant]
  12. B6 (PYRIDOXINE HYDROCHLORIDE) [Concomitant]
  13. CA (CALCIUM) [Concomitant]

REACTIONS (5)
  - CONDITION AGGRAVATED [None]
  - DISEASE PROGRESSION [None]
  - IDIOPATHIC PULMONARY FIBROSIS [None]
  - MYELODYSPLASTIC SYNDROME [None]
  - RESPIRATORY FAILURE [None]
